FAERS Safety Report 24132212 (Version 1)
Quarter: 2024Q3

REPORT INFORMATION
  Report Type: Spontaneous
  Country: US (occurrence: US)
  Receive Date: 20240724
  Receipt Date: 20240724
  Transmission Date: 20241016
  Serious: No
  Sender: ROCHE
  Company Number: US-ROCHE-10000034421

PATIENT

DRUGS (1)
  1. KADCYLA [Suspect]
     Active Substance: ADO-TRASTUZUMAB EMTANSINE
     Indication: Product used for unknown indication
     Route: 065

REACTIONS (8)
  - Fatigue [Unknown]
  - Muscle spasms [Unknown]
  - Neck pain [Unknown]
  - Constipation [Unknown]
  - Nausea [Unknown]
  - Headache [Unknown]
  - Skin exfoliation [Unknown]
  - Ear pain [Unknown]
